FAERS Safety Report 16907304 (Version 1)
Quarter: 2019Q4

REPORT INFORMATION
  Report Type: Spontaneous
  Country: AT (occurrence: AT)
  Receive Date: 20191011
  Receipt Date: 20191011
  Transmission Date: 20200122
  Serious: Yes (Other)
  Sender: FDA-Public Use
  Company Number: AT-ROCHE-2428664

PATIENT
  Age: 45 Year
  Sex: Female

DRUGS (1)
  1. XELODA [Suspect]
     Active Substance: CAPECITABINE
     Indication: TRIPLE NEGATIVE BREAST CANCER
     Route: 048
     Dates: start: 201905, end: 201909

REACTIONS (3)
  - General physical health deterioration [Unknown]
  - Cough [Unknown]
  - Metastasis [Unknown]

NARRATIVE: CASE EVENT DATE: 201909
